FAERS Safety Report 21559445 (Version 1)
Quarter: 2022Q4

REPORT INFORMATION
  Report Type: Spontaneous
  Country: US (occurrence: US)
  Receive Date: 20221107
  Receipt Date: 20221107
  Transmission Date: 20230112
  Serious: Yes (Other)
  Sender: FDA-Public Use
  Company Number: US-COOPERSURGICAL, INC.-US-2022CPS003792

PATIENT
  Age: 26 Year
  Sex: Female
  Weight: 74.376 kg

DRUGS (1)
  1. PARAGARD T 380A [Suspect]
     Active Substance: COPPER
     Indication: Product used for unknown indication
     Dosage: UNK
     Route: 015
     Dates: start: 20200706, end: 20221017

REACTIONS (5)
  - Ovarian cyst [Unknown]
  - Pregnancy with contraceptive device [Not Recovered/Not Resolved]
  - Embedded device [Recovered/Resolved]
  - Device expulsion [Recovered/Resolved]
  - Drug ineffective [Unknown]

NARRATIVE: CASE EVENT DATE: 20220901
